FAERS Safety Report 5110319-7 (Version None)
Quarter: 2006Q3

REPORT INFORMATION
  Report Type: 
  Country: None (occurrence: None)
  Receive Date: 20060731
  Receipt Date: 20060626
  Transmission Date: 20061208
  Serious: No
  Sender: FDA-Public Use
  Company Number: 2006PV016410

PATIENT
  Age: 70 Year
  Sex: Female
  Weight: 79.8331 kg

DRUGS (1)
  1. BYETTA [Suspect]
     Dosage: 5 MCG; QD; SC
     Route: 058
     Dates: start: 20060511

REACTIONS (6)
  - BLOOD GLUCOSE DECREASED [None]
  - DECREASED APPETITE [None]
  - FEELING HOT [None]
  - HYPERHIDROSIS [None]
  - NAUSEA [None]
  - WEIGHT DECREASED [None]
